FAERS Safety Report 5968806-5 (Version None)
Quarter: 2008Q4

REPORT INFORMATION
  Report Type: 
  Country: None (occurrence: None)
  Receive Date: 20081121
  Receipt Date: 20081121
  Transmission Date: 20090506
  Serious: No
  Sender: FDA-Public Use
  Company Number: None

PATIENT
  Sex: Male
  Weight: 24.0406 kg

DRUGS (1)
  1. VYVANSE [Suspect]
     Indication: ATTENTION DEFICIT/HYPERACTIVITY DISORDER
     Dosage: 30 MG 1X DAILY PO
     Route: 048
     Dates: start: 20081106, end: 20081119

REACTIONS (6)
  - FEAR [None]
  - HEADACHE [None]
  - MENTAL IMPAIRMENT [None]
  - SLEEP TERROR [None]
  - SOMNAMBULISM [None]
  - SOMNOLENCE [None]
